FAERS Safety Report 18054862 (Version 1)
Quarter: 2020Q3

REPORT INFORMATION
  Report Type: Spontaneous
  Country: US (occurrence: US)
  Receive Date: 20200721
  Receipt Date: 20200721
  Transmission Date: 20201103
  Serious: No
  Sender: FDA-Public Use
  Company Number: None

PATIENT
  Age: 67 Year
  Sex: Male

DRUGS (1)
  1. DABIGATRAN (DABIGATRAN ETEXILATE 110MG CAP, UD) [Suspect]
     Active Substance: DABIGATRAN ETEXILATE
     Indication: ATRIAL FIBRILLATION
     Route: 048
     Dates: start: 20160224, end: 20190902

REACTIONS (7)
  - Haematuria [None]
  - Rectal ulcer haemorrhage [None]
  - Gastrointestinal haemorrhage [None]
  - Decreased appetite [None]
  - Anaemia [None]
  - Haematochezia [None]
  - Diarrhoea [None]

NARRATIVE: CASE EVENT DATE: 20190929
